FAERS Safety Report 14113330 (Version 2)
Quarter: 2017Q4

REPORT INFORMATION
  Report Type: Spontaneous
  Country: MX (occurrence: MX)
  Receive Date: 20171023
  Receipt Date: 20171226
  Transmission Date: 20180321
  Serious: Yes (Life-Threatening, Hospitalization, Other)
  Sender: FDA-Public Use
  Company Number: MX-GLENMARK PHARMACEUTICALS-2017GMK029307

PATIENT
  Age: 74 Year
  Sex: Male

DRUGS (3)
  1. METFORMIN HYDROCHLORIDE. [Suspect]
     Active Substance: METFORMIN HYDROCHLORIDE
     Indication: SUICIDE ATTEMPT
     Dosage: 20 DF, UNK
     Route: 048
  2. GLIBENCLAMIDE [Concomitant]
     Active Substance: GLYBURIDE
     Indication: TYPE 2 DIABETES MELLITUS
     Dosage: 10 MG, QD
     Route: 065
  3. OLANZAPINE. [Concomitant]
     Active Substance: OLANZAPINE
     Indication: MENTAL DISORDER
     Dosage: 10 MG, QD
     Route: 065

REACTIONS (10)
  - Haemodynamic instability [Recovering/Resolving]
  - Epistaxis [Recovering/Resolving]
  - Lactic acidosis [Recovered/Resolved]
  - Multiple organ dysfunction syndrome [Unknown]
  - Intentional overdose [Recovering/Resolving]
  - Suicide attempt [Unknown]
  - Toxicity to various agents [Recovering/Resolving]
  - Acute kidney injury [Recovering/Resolving]
  - Hypoglycaemia [Recovering/Resolving]
  - Nodal arrhythmia [Recovering/Resolving]
